FAERS Safety Report 5034354-2 (Version None)
Quarter: 2006Q2

REPORT INFORMATION
  Report Type: 
  Country: None (occurrence: None)
  Receive Date: 20060626
  Receipt Date: 20060615
  Transmission Date: 20061013
  Serious: Yes (Hospitalization)
  Sender: FDA-Public Use
  Company Number: US-ROCHE-452159

PATIENT
  Age: 68 Year
  Sex: Female

DRUGS (2)
  1. PEGASYS [Suspect]
     Route: 058
     Dates: start: 20060324
  2. COPEGUS [Suspect]
     Route: 048
     Dates: start: 20060324

REACTIONS (2)
  - LOSS OF CONSCIOUSNESS [None]
  - POLLAKIURIA [None]
